FAERS Safety Report 20797052 (Version 3)
Quarter: 2022Q4

REPORT INFORMATION
  Report Type: Spontaneous
  Country: US (occurrence: US)
  Receive Date: 20220506
  Receipt Date: 20221216
  Transmission Date: 20230113
  Serious: Yes (Death, Hospitalization, Other)
  Sender: FDA-Public Use
  Company Number: US-BRISTOL-MYERS SQUIBB COMPANY-2022-031407

PATIENT
  Age: 89 Year
  Sex: Female
  Weight: 74.389 kg

DRUGS (9)
  1. ELIQUIS [Suspect]
     Active Substance: APIXABAN
     Indication: Deep vein thrombosis
     Route: 048
     Dates: start: 20200125, end: 20220324
  2. NOVOLOG [Concomitant]
     Active Substance: INSULIN ASPART
     Indication: Diabetes mellitus
     Dosage: 5U WITH MEDS
     Dates: start: 20201201, end: 20220324
  3. NOVOLOG [Concomitant]
     Active Substance: INSULIN ASPART
  4. SOLIQUA 100/33 [Concomitant]
     Active Substance: INSULIN GLARGINE\LIXISENATIDE
     Indication: Diabetes mellitus
     Dosage: 47 UNITS DAILY
     Dates: start: 20211214, end: 20220324
  5. SOLIQUA 100/33 [Concomitant]
     Active Substance: INSULIN GLARGINE\LIXISENATIDE
  6. LYRICA [Concomitant]
     Active Substance: PREGABALIN
     Indication: Pain
     Route: 048
     Dates: start: 20210629, end: 20220324
  7. LYRICA [Concomitant]
     Active Substance: PREGABALIN
  8. ZESTORETIC [Concomitant]
     Active Substance: HYDROCHLOROTHIAZIDE\LISINOPRIL
     Indication: Hypertension
     Dosage: 20- 125 MG QD
     Route: 048
     Dates: start: 20080404, end: 20220324
  9. ZESTORETIC [Concomitant]
     Active Substance: HYDROCHLOROTHIAZIDE\LISINOPRIL

REACTIONS (10)
  - Adenocarcinoma of colon [Fatal]
  - Gastrointestinal haemorrhage [Unknown]
  - Condition aggravated [Unknown]
  - Anaemia [Unknown]
  - Iron deficiency anaemia [Unknown]
  - Oesophagitis [Unknown]
  - Adenoma benign [Unknown]
  - Oedema peripheral [Unknown]
  - Mastitis [Unknown]
  - Intentional product use issue [Unknown]

NARRATIVE: CASE EVENT DATE: 20200125
